FAERS Safety Report 11234780 (Version 1)
Quarter: 2015Q3

REPORT INFORMATION
  Report Type: Spontaneous
  Country: EG (occurrence: EG)
  Receive Date: 20150702
  Receipt Date: 20150702
  Transmission Date: 20151125
  Serious: Yes (Hospitalization)
  Sender: FDA-Public Use
  Company Number: EG-NOVOPROD-453720

PATIENT
  Age: 14 Year
  Sex: Female
  Weight: 43 kg

DRUGS (4)
  1. LANTUS [Concomitant]
     Active Substance: INSULIN GLARGINE
     Dosage: 40 IU, SINGLE (AT LEG, ARM AND ABDOMEN BUT NOW SUBCUTENOUS AT BOTH LEGS ONLY; AT 11 PM)
     Route: 058
     Dates: start: 20150515
  2. ACTRAPID [Suspect]
     Active Substance: INSULIN HUMAN
     Dosage: 68 U, QD (18 UNITS BEFORE BREAKFAST , 30 UNITS BEFORE LUNCH , 20 UNITS BEFORE DINNER)
     Route: 058
     Dates: start: 20150515
  3. LANTUS [Concomitant]
     Active Substance: INSULIN GLARGINE
     Indication: DIABETES MELLITUS
     Dosage: 20 U, QD (20 UNITS ONCE DAILY AT 11 PM )
     Route: 058
     Dates: start: 2011
  4. ACTRAPID [Suspect]
     Active Substance: INSULIN HUMAN
     Indication: DIABETES MELLITUS
     Dosage: 20 U, QD (5 UNITS BEFORE BREAKFAST ,10 UNITS BEFORE LUNCH ,5 UNITS BEFORE DINNER)
     Route: 058
     Dates: start: 2011

REACTIONS (1)
  - Diabetic hyperglycaemic coma [Recovered/Resolved]

NARRATIVE: CASE EVENT DATE: 2015
